FAERS Safety Report 15209141 (Version 1)
Quarter: 2018Q3

REPORT INFORMATION
  Report Type: Report from Study
  Country: IT (occurrence: IT)
  Receive Date: 20180727
  Receipt Date: 20180727
  Transmission Date: 20181010
  Serious: Yes (Hospitalization)
  Sender: FDA-Public Use
  Company Number: IT-JNJFOC-20180731749

PATIENT
  Age: 80 Year
  Sex: Female
  Weight: 75 kg

DRUGS (7)
  1. XARELTO [Suspect]
     Active Substance: RIVAROXABAN
     Indication: ATRIAL FIBRILLATION
     Route: 048
     Dates: start: 20160101, end: 20170602
  2. LANSOX [Concomitant]
     Active Substance: LANSOPRAZOLE
     Route: 048
     Dates: start: 20110101, end: 20170602
  3. NORVASC [Concomitant]
     Active Substance: AMLODIPINE BESYLATE
     Route: 048
     Dates: start: 20110101, end: 20170602
  4. PLAVIX [Suspect]
     Active Substance: CLOPIDOGREL BISULFATE
     Indication: CEREBROVASCULAR ACCIDENT
     Route: 048
     Dates: start: 20160101, end: 20170602
  5. TRITTICO [Concomitant]
     Active Substance: TRAZODONE HYDROCHLORIDE
     Route: 048
     Dates: start: 20110101, end: 20170602
  6. TORVAST [Concomitant]
     Active Substance: ATORVASTATIN
     Route: 048
     Dates: start: 20110101, end: 20170602
  7. KCL [Concomitant]
     Active Substance: POTASSIUM CHLORIDE
     Route: 048
     Dates: start: 20110101, end: 20170602

REACTIONS (3)
  - Melaena [Recovering/Resolving]
  - Asthenia [Recovering/Resolving]
  - Vomiting [Recovering/Resolving]

NARRATIVE: CASE EVENT DATE: 20170602
